FAERS Safety Report 11398301 (Version 1)
Quarter: 2015Q3

REPORT INFORMATION
  Report Type: Spontaneous
  Country: US (occurrence: US)
  Receive Date: 20150820
  Receipt Date: 20150820
  Transmission Date: 20151125
  Serious: No
  Sender: FDA-Public Use
  Company Number: US-TEVA-519967USA

PATIENT
  Age: 66 Year
  Sex: Female
  Weight: 74.91 kg

DRUGS (8)
  1. TOPROL XL [Concomitant]
     Active Substance: METOPROLOL SUCCINATE
     Indication: HYPERTENSION
  2. CARBIDOPA AND LEVODOPA [Suspect]
     Active Substance: CARBIDOPA\LEVODOPA
     Indication: PARKINSON^S DISEASE
     Route: 065
  3. TIZANIDINE. [Suspect]
     Active Substance: TIZANIDINE
     Route: 065
  4. TRAMADOL. [Suspect]
     Active Substance: TRAMADOL
     Route: 065
  5. PRAVASTATIN [Concomitant]
     Active Substance: PRAVASTATIN\PRAVASTATIN SODIUM
     Indication: BLOOD CHOLESTEROL INCREASED
  6. LISINOPRIL. [Concomitant]
     Active Substance: LISINOPRIL
     Indication: HYPERTENSION
  7. MOBIC [Suspect]
     Active Substance: MELOXICAM
     Route: 065
  8. ROPINOROLE REGULAR [Suspect]
     Active Substance: ROPINIROLE
     Route: 065

REACTIONS (13)
  - Nausea [Unknown]
  - Somnolence [Unknown]
  - Feeling jittery [Unknown]
  - Scoliosis [Unknown]
  - Nerve injury [Unknown]
  - Hot flush [Unknown]
  - Drug ineffective [Unknown]
  - Nervous system disorder [Unknown]
  - Back disorder [Unknown]
  - Adverse event [Unknown]
  - Drug intolerance [Unknown]
  - Malaise [Unknown]
  - Vomiting [Unknown]

NARRATIVE: CASE EVENT DATE: 201408
